FAERS Safety Report 4802722-7 (Version None)
Quarter: 2005Q4

REPORT INFORMATION
  Report Type: 
  Country: None (occurrence: None)
  Receive Date: 20051014
  Receipt Date: 20041013
  Transmission Date: 20060501
  Serious: Yes (Other)
  Sender: FDA-Public Use
  Company Number: 2004038267

PATIENT
  Age: 64 Year
  Sex: Male

DRUGS (5)
  1. NEURONTIN [Suspect]
     Indication: PAIN
     Dosage: 600 MG (300 MG, 2 IN 1 D)
     Dates: start: 20030311, end: 20030908
  2. METFORMIN HCL [Concomitant]
  3. HYDROMORPHONE HYDROCHLORIDE (HYDROMORPHONE HYDROCHLORIDE) [Concomitant]
  4. LEVOTHYROXINE SODIUM [Concomitant]
  5. QUINAPRIL HCL [Concomitant]

REACTIONS (1)
  - LOSS OF CONSCIOUSNESS [None]
